FAERS Safety Report 4503389-8 (Version None)
Quarter: 2004Q4

REPORT INFORMATION
  Report Type: 
  Country: None (occurrence: None)
  Receive Date: 20041117
  Receipt Date: 20041021
  Transmission Date: 20050328
  Serious: Yes (Other)
  Sender: FDA-Public Use
  Company Number: 200404065

PATIENT
  Age: 59 Year
  Sex: Female

DRUGS (11)
  1. TAGAMET [Suspect]
     Indication: DUODENAL ULCER
     Dates: start: 20031127, end: 20041015
  2. ATARAX [Concomitant]
     Dates: start: 20041015, end: 20041015
  3. XYLOCAINE [Concomitant]
     Dates: start: 20041015, end: 20041015
  4. FLOMOX [Concomitant]
  5. MICARDIS [Concomitant]
     Dates: start: 20031107
  6. BAYASPIRIN [Concomitant]
     Dates: start: 20040101, end: 20041015
  7. SENNOSIDES A + B [Concomitant]
  8. ALOSENN [Concomitant]
  9. GLUCOBAY [Concomitant]
     Dates: start: 20040916, end: 20041019
  10. RENAGEL [Concomitant]
     Dates: start: 20040525
  11. ESPO [Concomitant]
     Dates: start: 20031117

REACTIONS (2)
  - DEPRESSED LEVEL OF CONSCIOUSNESS [None]
  - SOMNOLENCE [None]
